FAERS Safety Report 7948517-7 (Version None)
Quarter: 2011Q4

REPORT INFORMATION
  Report Type: 
  Country: None (occurrence: None)
  Receive Date: 20111123
  Receipt Date: 20111115
  Transmission Date: 20120403
  Serious: Yes (Other)
  Sender: FDA-Public Use
  Company Number: KAD201111-000065

PATIENT
  Age: 49 Year
  Sex: Male

DRUGS (10)
  1. DEXAMETHASONE [Suspect]
     Indication: MULTIPLE MYELOMA
  2. PREDNISONE TAB [Suspect]
     Indication: MULTIPLE MYELOMA
  3. INFERGEN [Suspect]
     Indication: MULTIPLE MYELOMA
     Dosage: 3 X 10 IU THRICE WEEKLY
  4. ETOPOSIDE [Suspect]
     Indication: MULTIPLE MYELOMA
  5. CYCLOPHOSPHAMIDE [Suspect]
     Indication: MULTIPLE MYELOMA
  6. CYTARABINE [Suspect]
     Indication: MULTIPLE MYELOMA
     Dates: start: 19981101
  7. CARMUSTINE [Suspect]
     Indication: MULTIPLE MYELOMA
     Dates: start: 19981101
  8. IFOSFAMIDE [Suspect]
     Indication: MULTIPLE MYELOMA
  9. CISPLATIN [Suspect]
     Indication: MULTIPLE MYELOMA
  10. MELPHALAN HYDROCHLORIDE [Suspect]
     Indication: MULTIPLE MYELOMA
     Dosage: 10 CYCLES

REACTIONS (4)
  - NEOPLASM PROGRESSION [None]
  - STEM CELL TRANSPLANT [None]
  - REFRACTORY CYTOPENIA WITH MULTILINEAGE DYSPLASIA [None]
  - MULTIPLE MYELOMA [None]
